FAERS Safety Report 5547345-X (Version None)
Quarter: 2007Q4

REPORT INFORMATION
  Report Type: 
  Country: None (occurrence: None)
  Receive Date: 20071211
  Receipt Date: 20071122
  Transmission Date: 20080405
  Serious: Yes (Life-Threatening)
  Sender: FDA-Public Use
  Company Number: JP-ASTRAZENECA-2007AP06616

PATIENT
  Age: 26656 Day
  Sex: Female

DRUGS (7)
  1. SEROQUEL [Suspect]
     Indication: SENILE DEMENTIA
     Route: 048
     Dates: start: 20070801
  2. NELBON [Concomitant]
     Indication: MENTAL DISORDER
     Route: 048
  3. EURODIN [Concomitant]
     Indication: MENTAL DISORDER
     Route: 048
  4. STOGAR [Concomitant]
     Indication: DUODENAL ULCER
     Route: 048
  5. CONIEL [Concomitant]
     Indication: HYPERTENSION
     Route: 048
  6. GASMOTIN [Concomitant]
     Indication: DUODENAL ULCER
     Route: 048
  7. GASCON [Concomitant]
     Indication: DUODENAL ULCER
     Route: 048

REACTIONS (13)
  - COMA [None]
  - CONVULSION [None]
  - HYPOKALAEMIA [None]
  - HYPONATRAEMIA [None]
  - LONG QT SYNDROME [None]
  - RESTLESSNESS [None]
  - SUPRAVENTRICULAR EXTRASYSTOLES [None]
  - TORSADE DE POINTES [None]
  - URINARY INCONTINENCE [None]
  - VENTRICULAR FIBRILLATION [None]
  - VENTRICULAR TACHYCARDIA [None]
  - VOMITING [None]
  - WATER INTOXICATION [None]
